FAERS Safety Report 5804637-4 (Version None)
Quarter: 2008Q3

REPORT INFORMATION
  Report Type: 
  Country: None (occurrence: None)
  Receive Date: 20080709
  Receipt Date: 20080626
  Transmission Date: 20090109
  Serious: Yes (Hospitalization)
  Sender: FDA-Public Use
  Company Number: FR-ELI_LILLY_AND_COMPANY-FR200807000320

PATIENT
  Age: 76 Year
  Sex: Female

DRUGS (5)
  1. FORTEO [Suspect]
     Indication: OSTEOPOROSIS
     Dosage: 20 UG, DAILY (1/D)
     Route: 065
     Dates: start: 20070904
  2. ARAVA [Concomitant]
     Dosage: UNK, UNKNOWN
     Route: 065
  3. CORTANCYL [Concomitant]
     Dosage: UNK, UNKNOWN
     Route: 065
  4. INIPOMP [Concomitant]
     Dosage: UNK, UNKNOWN
     Route: 065
  5. IPERTEN [Concomitant]
     Dosage: UNK, UNKNOWN
     Route: 065

REACTIONS (2)
  - SCIATICA [None]
  - SPINAL FRACTURE [None]
